FAERS Safety Report 8102466-2 (Version None)
Quarter: 2012Q1

REPORT INFORMATION
  Report Type: 
  Country: None (occurrence: None)
  Receive Date: 20120201
  Receipt Date: 20120124
  Transmission Date: 20120608
  Serious: Yes (Hospitalization)
  Sender: FDA-Public Use
  Company Number: US-CELGENEUS-163-21880-11100025

PATIENT
  Sex: Female
  Weight: 110 kg

DRUGS (26)
  1. ONDANSETRON HCL [Concomitant]
     Indication: VOMITING
  2. ACETAMINOPHEN [Concomitant]
     Indication: PAIN
     Dosage: 650 MILLIGRAM
     Route: 048
     Dates: start: 20110914
  3. SODIUM CHLORIDE [Concomitant]
     Dosage: 1000 MILLILITER
     Route: 041
     Dates: start: 20110913
  4. ATIVAN [Concomitant]
     Dosage: .5 MILLIGRAM
     Route: 048
     Dates: start: 20110915
  5. PROTONIX [Concomitant]
     Dosage: 40 MILLIGRAM
     Route: 041
     Dates: start: 20110914
  6. CATAPRES [Concomitant]
     Dosage: .1 MILLIGRAM
     Route: 048
     Dates: start: 20110914
  7. ANTIVERT [Concomitant]
     Dosage: 25 MILLIGRAM
     Route: 048
     Dates: start: 20110914
  8. MOBIC [Concomitant]
     Dosage: 15 MILLIGRAM
     Route: 048
     Dates: start: 20110914
  9. FLAGYL [Concomitant]
     Dosage: 500 MILLIGRAM
     Dates: start: 20110914
  10. ONDANSETRON HCL [Concomitant]
     Indication: NAUSEA
     Dosage: 8MG-4MG
     Route: 041
     Dates: start: 20110913
  11. SYNTHROID [Concomitant]
     Dosage: 50 MICROGRAM
     Route: 048
     Dates: start: 20110914
  12. NORCO [Concomitant]
     Indication: PAIN
     Dosage: 5-325MG
     Route: 048
     Dates: start: 20110914
  13. ASPIRIN [Concomitant]
     Dosage: 325 MILLIGRAM
     Route: 048
     Dates: start: 20110914
  14. DULCOLAX [Concomitant]
     Dosage: 10 MILLIGRAM
     Route: 054
     Dates: start: 20110914
  15. LOMOTIL [Concomitant]
     Dosage: 2 EACH
     Route: 048
     Dates: start: 20110914
  16. NITROGLYCERIN [Concomitant]
     Indication: ANGINA PECTORIS
     Dosage: .4 MILLIGRAM
     Route: 060
     Dates: start: 20110914
  17. PRAVACHOL [Concomitant]
     Dosage: 20 MILLIGRAM
     Route: 048
     Dates: start: 20110914
  18. AMBIEN [Concomitant]
     Indication: INSOMNIA
     Dosage: 5 MILLIGRAM
     Route: 048
     Dates: start: 20110914
  19. REVLIMID [Suspect]
     Indication: MYELODYSPLASTIC SYNDROME
     Dosage: 10 MILLIGRAM
     Route: 048
     Dates: start: 20110816, end: 20110823
  20. MAG-AL PLUS XS [Concomitant]
     Route: 048
     Dates: start: 20110914
  21. GUAIFENESIN DM [Concomitant]
     Indication: COUGH
     Dosage: 2 EACH
     Route: 048
     Dates: start: 20110914
  22. PHENERGAN [Concomitant]
     Dosage: 12.5 MILLIGRAM
     Route: 041
     Dates: start: 20110914
  23. DUONEB [Concomitant]
     Dosage: 3 MILLILITER
     Route: 055
     Dates: start: 20111016
  24. DILAUDID [Concomitant]
     Dosage: 1 MILLIGRAM
     Route: 041
     Dates: start: 20110913
  25. MILK OF MAGNESIUM [Concomitant]
     Indication: CONSTIPATION
     Dosage: 30 MILLILITER
     Route: 048
     Dates: start: 20110914
  26. POTASSIUM CHLORIDE [Concomitant]
     Dosage: 20 MILLIEQUIVALENTS
     Dates: start: 20110913

REACTIONS (4)
  - INSOMNIA [None]
  - THINKING ABNORMAL [None]
  - PLATELET COUNT DECREASED [None]
  - DIVERTICULITIS [None]
